FAERS Safety Report 10268841 (Version 1)
Quarter: 2014Q2

REPORT INFORMATION
  Report Type: Spontaneous
  Country: US (occurrence: US)
  Receive Date: 20140630
  Receipt Date: 20140630
  Transmission Date: 20141212
  Serious: Yes (Other)
  Sender: FDA-Public Use
  Company Number: US-GLAXOSMITHKLINE-A1078988A

PATIENT
  Age: 74 Year
  Sex: 0

DRUGS (2)
  1. ALKERAN [Suspect]
     Indication: PLASMA CELL MYELOMA
     Dosage: 16MG SEE DOSAGE TEXT
     Route: 048
     Dates: start: 20110916, end: 20111016
  2. REVLIMID [Suspect]
     Indication: PLASMA CELL MYELOMA
     Dosage: 5MG PER DAY
     Route: 048
     Dates: start: 20110916, end: 20111016

REACTIONS (1)
  - Renal failure [Unknown]
